FAERS Safety Report 15573940 (Version 1)
Quarter: 2018Q4

REPORT INFORMATION
  Report Type: Report from Study
  Country: US (occurrence: US)
  Receive Date: 20181101
  Receipt Date: 20181101
  Transmission Date: 20190205
  Serious: No
  Sender: FDA-Public Use
  Company Number: US-ROCHE-2004643

PATIENT
  Sex: Female

DRUGS (1)
  1. OCREVUS [Suspect]
     Active Substance: OCRELIZUMAB
     Indication: MULTIPLE SCLEROSIS
     Dosage: (SECOND HALF DOSE: 05/OCT/2017)
     Route: 065

REACTIONS (4)
  - Spinal pain [Unknown]
  - Upper respiratory tract infection [Recovered/Resolved]
  - Fatigue [Unknown]
  - Discomfort [Unknown]
